FAERS Safety Report 5256313-7 (Version None)
Quarter: 2007Q1

REPORT INFORMATION
  Report Type: 
  Country: None (occurrence: None)
  Receive Date: 20070306
  Receipt Date: 20070221
  Transmission Date: 20070707
  Serious: Yes (Other)
  Sender: FDA-Public Use
  Company Number: PHBS2007NO03284

PATIENT
  Age: 32 Year
  Sex: Female

DRUGS (2)
  1. SYNTOCINON [Suspect]
  2. MARCAIN-ADRENALIN [Suspect]

REACTIONS (1)
  - ANGIOEDEMA [None]
